FAERS Safety Report 6791041-8 (Version None)
Quarter: 2010Q2

REPORT INFORMATION
  Report Type: 
  Country: None (occurrence: None)
  Receive Date: 20100624
  Receipt Date: 20100617
  Transmission Date: 20101027
  Serious: Yes (Hospitalization)
  Sender: FDA-Public Use
  Company Number: TR-BRISTOL-MYERS SQUIBB COMPANY-15017122

PATIENT
  Age: 49 Year
  Sex: Male
  Weight: 108 kg

DRUGS (3)
  1. CETUXIMAB [Suspect]
     Indication: NON-SMALL CELL LUNG CANCER
     Dosage: INITIAL DOSE 400MG/M2
     Route: 042
     Dates: start: 20100112, end: 20100302
  2. CISPLATIN [Suspect]
     Indication: NON-SMALL CELL LUNG CANCER
     Dosage: DAY 1OF 21DAY CYCLE
     Route: 042
     Dates: start: 20100112, end: 20100302
  3. GEMCITABINE HCL [Suspect]
     Indication: NON-SMALL CELL LUNG CANCER
     Dosage: DAY 1,8 OF 21DAY CYCLE
     Route: 042
     Dates: start: 20100112, end: 20100302

REACTIONS (3)
  - PAIN IN EXTREMITY [None]
  - PERIPHERAL ISCHAEMIA [None]
  - PULSE ABSENT [None]
